FAERS Safety Report 18916217 (Version 1)
Quarter: 2021Q1

REPORT INFORMATION
  Report Type: Spontaneous
  Country: US (occurrence: US)
  Receive Date: 20210219
  Receipt Date: 20210219
  Transmission Date: 20210420
  Serious: Yes (Disabling, Other)
  Sender: FDA-Public Use
  Company Number: None

PATIENT
  Age: 27 Year
  Sex: Male
  Weight: 64.35 kg

DRUGS (3)
  1. ZENZEDI 10MG PRN [Concomitant]
  2. CYMBALTA [Suspect]
     Active Substance: DULOXETINE HYDROCHLORIDE
     Indication: MAJOR DEPRESSION
     Dosage: ?          QUANTITY:1 CAPSULE(S);?
     Route: 048
  3. VITAMINS (FISH OIL 1000MG, TUMERIC CURCUMIN 500MG, VITAMIN D 5,000IU) [Concomitant]

REACTIONS (29)
  - Emotional disorder [None]
  - Confusional state [None]
  - Sensory disturbance [None]
  - Irritability [None]
  - Crying [None]
  - Sleep disorder [None]
  - Heart rate increased [None]
  - Gastrointestinal disorder [None]
  - Poor quality sleep [None]
  - Decreased appetite [None]
  - Anger [None]
  - Weight decreased [None]
  - Tachyphrenia [None]
  - Drug withdrawal syndrome [None]
  - Cold sweat [None]
  - Disturbance in attention [None]
  - Feeling of despair [None]
  - Nightmare [None]
  - Product complaint [None]
  - Feeling abnormal [None]
  - Suicidal ideation [None]
  - Anxiety [None]
  - Flat affect [None]
  - Cognitive disorder [None]
  - Feeling guilty [None]
  - Orthostatic hypotension [None]
  - Violence-related symptom [None]
  - Night sweats [None]
  - Restlessness [None]

NARRATIVE: CASE EVENT DATE: 20210125
